FAERS Safety Report 4313136-0 (Version None)
Quarter: 2004Q1

REPORT INFORMATION
  Report Type: 
  Country: None (occurrence: None)
  Receive Date: 20040304
  Receipt Date: 20040213
  Transmission Date: 20041129
  Serious: Yes (Hospitalization)
  Sender: FDA-Public Use
  Company Number: FR_040203530

PATIENT
  Age: 37 Year
  Sex: Male

DRUGS (6)
  1. CIALIS [Suspect]
     Indication: ERECTILE DYSFUNCTION
     Dosage: 20 MG/AS NEEDED
     Dates: start: 20030101, end: 20031001
  2. VIAGRA [Concomitant]
  3. OMIX(TAMSULOSIN HYDROCHLORIDE) [Concomitant]
  4. ZOXAN LP(DOXAZOSIN MESILATE) [Concomitant]
  5. SOLU-MEDROL [Concomitant]
  6. COPAXONE [Concomitant]

REACTIONS (2)
  - HEPATITIS [None]
  - IATROGENIC INJURY [None]
